FAERS Safety Report 20751118 (Version 1)
Quarter: 2022Q2

REPORT INFORMATION
  Report Type: Spontaneous
  Country: PT (occurrence: None)
  Receive Date: 20220426
  Receipt Date: 20220426
  Transmission Date: 20220720
  Serious: Yes (Disabling)
  Sender: FDA-Public Use
  Company Number: None

PATIENT
  Age: 26 Year
  Sex: Female

DRUGS (2)
  1. ROPIVACAINE HYDROCHLORIDE [Suspect]
     Active Substance: ROPIVACAINE HYDROCHLORIDE
     Indication: Pain
     Dosage: 1 MG/ML
     Dates: start: 20220228, end: 20220301
  2. SUFENTANIL [Suspect]
     Active Substance: SUFENTANIL
     Indication: Pain
     Dosage: 0,2 MCG/ML
     Dates: start: 20220228

REACTIONS (2)
  - Radiculopathy [Unknown]
  - Paraparesis [Unknown]

NARRATIVE: CASE EVENT DATE: 20220228
